FAERS Safety Report 18691082 (Version 1)
Quarter: 2021Q1

REPORT INFORMATION
  Report Type: Spontaneous
  Country: US (occurrence: US)
  Receive Date: 20210101
  Receipt Date: 20210101
  Transmission Date: 20210419
  Serious: Yes (Other)
  Sender: FDA-Public Use
  Company Number: US-SA-2020SA376968

PATIENT

DRUGS (2)
  1. ZANTAC [Suspect]
     Active Substance: RANITIDINE HYDROCHLORIDE
     Dosage: 75 UNK
     Dates: end: 201901
  2. ZANTAC [Suspect]
     Active Substance: RANITIDINE HYDROCHLORIDE
     Indication: DYSPEPSIA
     Dosage: 25 MG, QD
     Dates: start: 200501

REACTIONS (3)
  - Disease progression [Not Recovered/Not Resolved]
  - Gastric cancer [Unknown]
  - Colorectal cancer stage III [Not Recovered/Not Resolved]

NARRATIVE: CASE EVENT DATE: 20171101
